FAERS Safety Report 6061429-1 (Version None)
Quarter: 2009Q1

REPORT INFORMATION
  Report Type: 
  Country: None (occurrence: None)
  Receive Date: 20090202
  Receipt Date: 20090129
  Transmission Date: 20090719
  Serious: Yes (Other)
  Sender: FDA-Public Use
  Company Number: US-BAYER-200814087BCC

PATIENT
  Age: 79 Year
  Sex: Female
  Weight: 54 kg

DRUGS (1)
  1. ASPIRIN [Suspect]
     Indication: ARTHRALGIA

REACTIONS (3)
  - BURNING SENSATION [None]
  - MUSCLE SPASMS [None]
  - RECTAL HAEMORRHAGE [None]
